FAERS Safety Report 5193728-X (Version None)
Quarter: 2006Q4

REPORT INFORMATION
  Report Type: 
  Country: None (occurrence: None)
  Receive Date: 20061228
  Receipt Date: 20061221
  Transmission Date: 20070319
  Serious: Yes (Hospitalization)
  Sender: FDA-Public Use
  Company Number: US-GLAXOSMITHKLINE-A0632474A

PATIENT
  Sex: Male

DRUGS (9)
  1. ALBUTEROL [Suspect]
     Indication: DRUG USE FOR UNKNOWN INDICATION
     Route: 055
     Dates: start: 20010101
  2. LANOXIN [Suspect]
     Indication: ATRIAL FIBRILLATION
     Dosage: 125MCG PER DAY
     Route: 048
  3. SEREVENT [Suspect]
     Indication: DRUG USE FOR UNKNOWN INDICATION
     Route: 055
  4. VERAPAMIL [Concomitant]
  5. COUMADIN [Concomitant]
  6. ASPIRIN [Concomitant]
  7. ATROVENT [Concomitant]
  8. AEROBID [Concomitant]
  9. FLOVENT [Concomitant]

REACTIONS (4)
  - ARRHYTHMIA [None]
  - HEADACHE [None]
  - HEART RATE INCREASED [None]
  - SWELLING [None]
